FAERS Safety Report 16534450 (Version 7)
Quarter: 2021Q3

REPORT INFORMATION
  Report Type: Spontaneous
  Country: DE (occurrence: DE)
  Receive Date: 20190705
  Receipt Date: 20210925
  Transmission Date: 20211014
  Serious: Yes (Hospitalization, Other)
  Sender: FDA-Public Use
  Company Number: PHHY2019DE151778

PATIENT
  Sex: Male

DRUGS (18)
  1. VALSARTAN 1A PHARMA 160 MG ? FILMTABLETTEN [Suspect]
     Active Substance: VALSARTAN
     Dosage: 320 MG, QD, ONCE DAILY IN THE MORNING
     Route: 065
     Dates: start: 20161114, end: 20180706
  2. VALSARTAN 1A PHARMA 160 MG ? FILMTABLETTEN [Suspect]
     Active Substance: VALSARTAN
     Dosage: 160 MG, UNK
     Route: 065
     Dates: start: 20151204, end: 2016
  3. VALSARTAN 1A PHARMA 160 MG ? FILMTABLETTEN [Suspect]
     Active Substance: VALSARTAN
     Dosage: 320 MG, UNK
     Route: 065
     Dates: start: 20170223
  4. BRILIQUE [Concomitant]
     Active Substance: TICAGRELOR
     Indication: PRODUCT USED FOR UNKNOWN INDICATION
     Dosage: 90 MG
     Route: 065
     Dates: start: 20161114, end: 201711
  5. METOSUCCINAT [Concomitant]
     Indication: PRODUCT USED FOR UNKNOWN INDICATION
     Dosage: 47.5 MG
     Route: 065
     Dates: end: 20170521
  6. METOSUCCINAT [Concomitant]
     Dosage: 95 MG
     Route: 065
     Dates: start: 20170522
  7. SIMVASTATIN. [Concomitant]
     Active Substance: SIMVASTATIN
     Indication: PRODUCT USED FOR UNKNOWN INDICATION
     Dosage: 20 MG, QD (IN THE EVENINGS)
     Route: 065
     Dates: start: 201611
  8. VALSARTAN 1A PHARMA 160 MG ? FILMTABLETTEN [Suspect]
     Active Substance: VALSARTAN
     Dosage: 160 MG, UNK
     Route: 065
     Dates: start: 20160302, end: 2016
  9. VALSARTAN 1A PHARMA 160 MG ? FILMTABLETTEN [Suspect]
     Active Substance: VALSARTAN
     Dosage: 160 MG, UNK
     Route: 065
     Dates: start: 20160926, end: 2016
  10. CANDESARTAN. [Suspect]
     Active Substance: CANDESARTAN
     Indication: HYPERTENSION
     Dosage: 32 MG
     Route: 065
     Dates: start: 20180925
  11. ASPIRIN. [Concomitant]
     Active Substance: ASPIRIN
     Indication: PRODUCT USED FOR UNKNOWN INDICATION
     Dosage: 100 UNIT NOT PROVIDED
     Route: 065
     Dates: start: 201611
  12. VALSARTAN 1A PHARMA 160 MG ? FILMTABLETTEN [Suspect]
     Active Substance: VALSARTAN
     Indication: HYPERTENSION
     Dosage: 160 MG, QD, ONCE DAILY IN THE MORNING
     Route: 065
     Dates: start: 20150910, end: 2016
  13. VALSARTAN 1A PHARMA 160 MG ? FILMTABLETTEN [Suspect]
     Active Substance: VALSARTAN
     Dosage: 320 MG, UNK
     Route: 065
     Dates: start: 20170523
  14. VALSARTAN 1A PHARMA 160 MG ? FILMTABLETTEN [Suspect]
     Active Substance: VALSARTAN
     Dosage: 320 MG, UNK
     Route: 065
     Dates: start: 20170817
  15. VALSARTAN AUROBINDO [Suspect]
     Active Substance: VALSARTAN
     Indication: HYPERTENSION
     Dosage: 320 MG
     Route: 065
     Dates: start: 20180622
  16. AMLODIPINE [Concomitant]
     Active Substance: AMLODIPINE BESYLATE
     Indication: PRODUCT USED FOR UNKNOWN INDICATION
     Dosage: 5 MG, BID (IN THE MORNINGS AND EVENINGS)
     Route: 065
     Dates: start: 201611
  17. VALSARTAN 1A PHARMA 160 MG ? FILMTABLETTEN [Suspect]
     Active Substance: VALSARTAN
     Dosage: 320 MG, UNK
     Route: 065
     Dates: start: 20171211, end: 20180319
  18. VALSARTAN 1A PHARMA 160 MG ? FILMTABLETTEN [Suspect]
     Active Substance: VALSARTAN
     Dosage: 160 MG, UNK
     Route: 065
     Dates: start: 20160621, end: 2016

REACTIONS (17)
  - Coronary artery stenosis [Unknown]
  - Carotid arteriosclerosis [Unknown]
  - Renal pain [Unknown]
  - Joint swelling [Unknown]
  - Anxiety [Unknown]
  - General physical health deterioration [Unknown]
  - Quality of life decreased [Unknown]
  - Acute myocardial infarction [Unknown]
  - Middle insomnia [Unknown]
  - Depressed mood [Unknown]
  - Emotional distress [Unknown]
  - Product contamination [Unknown]
  - Myalgia [Recovered/Resolved]
  - Mitral valve incompetence [Unknown]
  - Asthenia [Unknown]
  - Hyperlipidaemia [Unknown]
  - Fear [Unknown]

NARRATIVE: CASE EVENT DATE: 2016
